FAERS Safety Report 9453202 (Version 1)
Quarter: 2013Q3

REPORT INFORMATION
  Report Type: Spontaneous
  Country: US (occurrence: US)
  Receive Date: 20130812
  Receipt Date: 20130812
  Transmission Date: 20140515
  Serious: Yes (Death)
  Sender: FDA-Public Use
  Company Number: US-PFIZER INC-2013232678

PATIENT
  Age: 61 Year
  Sex: Male

DRUGS (1)
  1. RAPAMUNE [Suspect]
     Dosage: 1 MG, 3X/DAY
     Dates: start: 20130221

REACTIONS (1)
  - Death [Fatal]
